FAERS Safety Report 7772916-X (Version None)
Quarter: 2011Q3

REPORT INFORMATION
  Report Type: 
  Country: None (occurrence: None)
  Receive Date: 20110922
  Receipt Date: 20100901
  Transmission Date: 20111222
  Serious: Yes (Other)
  Sender: FDA-Public Use
  Company Number: US-ASTRAZENECA-2009UW08451

PATIENT
  Sex: Female
  Weight: 140.4 kg

DRUGS (8)
  1. CELEXA [Concomitant]
     Dates: start: 20020911
  2. NEXIUM [Concomitant]
  3. LASIX [Concomitant]
     Dates: start: 20020911
  4. DEPAKOTE [Concomitant]
     Route: 048
     Dates: start: 20020826
  5. COUMADIN [Concomitant]
  6. SEROQUEL [Suspect]
     Dosage: 25 TO 600 MG
     Route: 048
     Dates: start: 20020826
  7. SEROQUEL [Suspect]
     Route: 048
  8. ATENOLOL [Concomitant]
     Route: 048
     Dates: start: 20020826

REACTIONS (1)
  - SYNCOPE [None]
